FAERS Safety Report 5207769-7 (Version None)
Quarter: 2006Q4

REPORT INFORMATION
  Report Type: 
  Country: None (occurrence: None)
  Receive Date: 20061030
  Receipt Date: 20060719
  Transmission Date: 20070319
  Serious: No
  Sender: FDA-Public Use
  Company Number: 255161

PATIENT
  Age: 59 Year
  Sex: Female
  Weight: 134.7 kg

DRUGS (3)
  1. LEVEMIR [Suspect]
     Indication: DIABETES MELLITUS
     Dosage: 16 IU, QD, SUBCUTANEOUS
     Route: 058
     Dates: start: 20060703, end: 20060717
  2. METFORMIN HCL [Concomitant]
  3. AVANDIA [Concomitant]

REACTIONS (3)
  - GENERALISED OEDEMA [None]
  - SWELLING FACE [None]
  - WEIGHT INCREASED [None]
